FAERS Safety Report 6027420-6 (Version None)
Quarter: 2009Q1

REPORT INFORMATION
  Report Type: 
  Country: None (occurrence: None)
  Receive Date: 20090105
  Receipt Date: 20081230
  Transmission Date: 20090719
  Serious: Yes (Other)
  Sender: FDA-Public Use
  Company Number: US-JNJFOC-20090100170

PATIENT
  Sex: Female
  Weight: 122.47 kg

DRUGS (1)
  1. DOXIL [Suspect]
     Indication: ENDOMETRIAL CANCER
     Dosage: CYCLES 1-3
     Route: 042

REACTIONS (1)
  - CARBOHYDRATE ANTIGEN 125 INCREASED [None]
